FAERS Safety Report 5787261-1 (Version None)
Quarter: 2008Q2

REPORT INFORMATION
  Report Type: 
  Country: None (occurrence: None)
  Receive Date: 20080625
  Receipt Date: 20070911
  Transmission Date: 20081010
  Serious: No
  Sender: FDA-Public Use
  Company Number: US-ASTRAZENECA-2007UW21427

PATIENT
  Age: 16 Year
  Sex: Male
  Weight: 81.6 kg

DRUGS (4)
  1. PULMICORT [Suspect]
     Indication: ASTHMA
     Dosage: ONE PUFF BID
     Route: 055
  2. IMMUNO SHOTS [Concomitant]
  3. NASONEX [Concomitant]
  4. MAXAIR [Concomitant]

REACTIONS (4)
  - COUGH [None]
  - EXPIRED DRUG ADMINISTERED [None]
  - MALAISE [None]
  - WHEEZING [None]
